FAERS Safety Report 6725360-8 (Version None)
Quarter: 2010Q2

REPORT INFORMATION
  Report Type: 
  Country: None (occurrence: None)
  Receive Date: 20100514
  Receipt Date: 20100504
  Transmission Date: 20101027
  Serious: Yes (Hospitalization)
  Sender: FDA-Public Use
  Company Number: US-JNJFOC-20100502134

PATIENT
  Sex: Male
  Weight: 87.5 kg

DRUGS (19)
  1. BLINDED; USTEKINUMA [Suspect]
     Indication: CROHN'S DISEASE
     Route: 058
  2. BLINDED; USTEKINUMA [Suspect]
     Route: 058
  3. PLACEBO [Suspect]
     Indication: CROHN'S DISEASE
     Route: 058
  4. PLACEBO [Suspect]
     Route: 058
  5. USTEKINUMAB-BLINDED [Suspect]
     Route: 042
  6. USTEKINUMAB-BLINDED [Suspect]
     Indication: CROHN'S DISEASE
     Route: 042
  7. PLACEBO [Suspect]
     Route: 042
  8. SULFASALAZINE [Concomitant]
     Indication: CROHN'S DISEASE
     Route: 048
  9. VICODIN [Concomitant]
     Route: 048
  10. ISONIAZID [Concomitant]
     Route: 048
  11. VITAMIN B-12 [Concomitant]
     Route: 058
  12. ACIPHEX [Concomitant]
     Route: 048
  13. CIPRO [Concomitant]
     Route: 048
  14. METRONIDAZOLE [Concomitant]
     Route: 048
  15. PROPRANOLOL [Concomitant]
     Route: 048
  16. METHADOSE [Concomitant]
     Route: 048
  17. METHOTREXATE [Concomitant]
     Indication: CROHN'S DISEASE
     Route: 030
  18. PREDNISONE TAB [Concomitant]
     Indication: CROHN'S DISEASE
  19. QUESTRAN [Concomitant]
     Route: 048

REACTIONS (1)
  - FISTULA [None]
